FAERS Safety Report 14126124 (Version 1)
Quarter: 2017Q4

REPORT INFORMATION
  Report Type: Spontaneous
  Country: US (occurrence: US)
  Receive Date: 20171025
  Receipt Date: 20171025
  Transmission Date: 20180321
  Serious: No
  Sender: FDA-Public Use
  Company Number: US-BAYER-2017-196480

PATIENT
  Sex: Female

DRUGS (3)
  1. ALEVE PM [Suspect]
     Active Substance: DIPHENHYDRAMINE HYDROCHLORIDE\NAPROXEN SODIUM
     Indication: PAIN
     Dosage: 1 DF, HS
     Route: 048
     Dates: start: 201709
  2. ALEVE [Suspect]
     Active Substance: NAPROXEN SODIUM
     Indication: PAIN
     Dosage: UNK
     Route: 048
     Dates: start: 2016
  3. ALEVE PM [Suspect]
     Active Substance: DIPHENHYDRAMINE HYDROCHLORIDE\NAPROXEN SODIUM
     Indication: SLEEP DISORDER

REACTIONS (3)
  - Incorrect drug administration duration [Not Recovered/Not Resolved]
  - Underdose [None]
  - Incorrect drug administration duration [None]

NARRATIVE: CASE EVENT DATE: 2016
